FAERS Safety Report 4677421-5 (Version None)
Quarter: 2005Q2

REPORT INFORMATION
  Report Type: 
  Country: None (occurrence: None)
  Receive Date: 20050531
  Receipt Date: 20030724
  Transmission Date: 20051028
  Serious: Yes (Disabling)
  Sender: FDA-Public Use
  Company Number: PHBS2003JP07813

PATIENT
  Age: 3 Year
  Sex: Female

DRUGS (2)
  1. MEFENAMIC ACID [Concomitant]
     Dosage: 2 ML, TID
     Route: 048
     Dates: start: 19990110
  2. DICLOFENAC SODIUM [Suspect]
     Indication: PYREXIA
     Dosage: 12.5 MG/DAY
     Route: 054
     Dates: start: 19990110

REACTIONS (8)
  - COMA [None]
  - CONVULSION [None]
  - COORDINATION ABNORMAL [None]
  - DELIRIUM [None]
  - ENCEPHALOPATHY [None]
  - MENTAL RETARDATION SEVERITY UNSPECIFIED [None]
  - PYREXIA [None]
  - RESTLESSNESS [None]
